FAERS Safety Report 5904217-6 (Version None)
Quarter: 2008Q3

REPORT INFORMATION
  Report Type: 
  Country: None (occurrence: None)
  Receive Date: 20080930
  Receipt Date: 20080930
  Transmission Date: 20090109
  Serious: Yes (Hospitalization)
  Sender: FDA-Public Use
  Company Number: None

PATIENT
  Age: 71 Year
  Sex: Female
  Weight: 71.2147 kg

DRUGS (1)
  1. RECLAST [Suspect]
     Dosage: 5 MG/ 100 ML X1 (15 MIN) IV OVER 1/2 HR
     Route: 042
     Dates: start: 20080624, end: 20080624

REACTIONS (4)
  - BURNING SENSATION [None]
  - INFLUENZA [None]
  - MUSCLE SPASMS [None]
  - MYALGIA [None]
